APPROVED DRUG PRODUCT: SCEMBLIX
Active Ingredient: ASCIMINIB HYDROCHLORIDE
Strength: EQ 20MG BASE
Dosage Form/Route: TABLET;ORAL
Application: N215358 | Product #001
Applicant: NOVARTIS PHARMACEUTICALS CORP
Approved: Oct 29, 2021 | RLD: Yes | RS: No | Type: RX

PATENTS:
Patent 12252479 | Expires: May 17, 2040
Patent 8829195 | Expires: Oct 29, 2035
Patent 12252478 | Expires: May 14, 2040
Patent 11407735 | Expires: May 14, 2040

EXCLUSIVITY:
Code: I-953 | Date: Oct 29, 2027
Code: I-954 | Date: Oct 29, 2027
Code: M-318 | Date: Oct 2, 2028
Code: NCE | Date: Oct 29, 2026
Code: ODE-381 | Date: Oct 29, 2028
Code: ODE-382 | Date: Oct 29, 2028
Code: ODE-499 | Date: Oct 29, 2031
Code: ODE-500 | Date: Oct 29, 2031